FAERS Safety Report 18755049 (Version 1)
Quarter: 2021Q1

REPORT INFORMATION
  Report Type: Other
  Country: US (occurrence: US)
  Receive Date: 20210119
  Receipt Date: 20210119
  Transmission Date: 20210419
  Serious: Yes (Hospitalization, Other)
  Sender: FDA-Public Use
  Company Number: US-ROCHE-2746024

PATIENT
  Age: 63 Year
  Sex: Female
  Weight: 102.6 kg

DRUGS (3)
  1. OXYGEN. [Concomitant]
     Active Substance: OXYGEN
     Indication: OXYGEN SATURATION DECREASED
     Route: 055
     Dates: start: 202012
  2. OCREVUS [Suspect]
     Active Substance: OCRELIZUMAB
     Indication: SECONDARY PROGRESSIVE MULTIPLE SCLEROSIS
     Dosage: MOST RECENT INFUSION RECEIVED ON 24/JUN/2019, 09/DEC/2019, 09/JUN/2020.
     Route: 042
     Dates: start: 20190708
  3. OCREVUS [Suspect]
     Active Substance: OCRELIZUMAB
     Indication: RELAPSING MULTIPLE SCLEROSIS

REACTIONS (7)
  - Sepsis [Recovered/Resolved]
  - Cough [Recovered/Resolved]
  - COVID-19 [Unknown]
  - Respiratory arrest [Recovered/Resolved]
  - Oxygen saturation decreased [Recovered/Resolved]
  - Pneumonia [Recovered/Resolved]
  - Multiple sclerosis relapse [Not Recovered/Not Resolved]

NARRATIVE: CASE EVENT DATE: 202011
